FAERS Safety Report 8807581 (Version 4)
Quarter: 2014Q4

REPORT INFORMATION
  Report Type: Spontaneous
  Country: US (occurrence: US)
  Receive Date: 20120925
  Receipt Date: 20141120
  Transmission Date: 20150529
  Serious: Yes (Life-Threatening, Hospitalization, Other)
  Sender: FDA-Public Use
  Company Number: US-JNJFOC-20120909000

PATIENT
  Age: 30 Year
  Sex: Female

DRUGS (1)
  1. DIPHENHYDRAMINE HYDROCHLORIDE. [Suspect]
     Active Substance: DIPHENHYDRAMINE HYDROCHLORIDE
     Indication: PRODUCT USED FOR UNKNOWN INDICATION
     Route: 065

REACTIONS (13)
  - Deep vein thrombosis [Unknown]
  - Mental status changes [Unknown]
  - Ventricular tachycardia [Not Recovered/Not Resolved]
  - Mydriasis [Recovering/Resolving]
  - Status epilepticus [Recovering/Resolving]
  - Dry mouth [Unknown]
  - Dry skin [Unknown]
  - Urinary retention [Unknown]
  - Unresponsive to stimuli [Recovering/Resolving]
  - Hypotension [Not Recovered/Not Resolved]
  - Pulseless electrical activity [Recovering/Resolving]
  - Intentional overdose [Unknown]
  - Gastrointestinal sounds abnormal [Unknown]
